FAERS Safety Report 10886896 (Version 1)
Quarter: 2015Q1

REPORT INFORMATION
  Report Type: Spontaneous
  Country: US (occurrence: US)
  Receive Date: 20150304
  Receipt Date: 20150304
  Transmission Date: 20150721
  Serious: No
  Sender: FDA-Public Use
  Company Number: US-PFIZER INC-2015073919

PATIENT
  Age: 61 Year
  Sex: Female
  Weight: 87 kg

DRUGS (1)
  1. LEVOXYL [Suspect]
     Active Substance: LEVOTHYROXINE SODIUM
     Indication: THYROID DISORDER
     Dosage: 112 MG, DAILY
     Route: 048

REACTIONS (4)
  - Joint swelling [Unknown]
  - Pain [Unknown]
  - Paraesthesia [Unknown]
  - Peripheral swelling [Unknown]
